FAERS Safety Report 20656464 (Version 1)
Quarter: 2022Q1

REPORT INFORMATION
  Report Type: Spontaneous
  Country: RS (occurrence: RS)
  Receive Date: 20220331
  Receipt Date: 20220331
  Transmission Date: 20220423
  Serious: Yes (Other)
  Sender: FDA-Public Use
  Company Number: RS-009507513-2203SRB008989

PATIENT
  Age: 43 Year
  Sex: Female

DRUGS (1)
  1. KEYTRUDA [Suspect]
     Active Substance: PEMBROLIZUMAB
     Indication: Metastatic malignant melanoma
     Dosage: UNK
     Dates: start: 20180901, end: 20211130

REACTIONS (3)
  - Malignant neoplasm progression [Unknown]
  - Tumour pseudoprogression [Unknown]
  - Therapy partial responder [Unknown]
